FAERS Safety Report 11414141 (Version 1)
Quarter: 2015Q3

REPORT INFORMATION
  Report Type: Report from Study
  Country: US (occurrence: US)
  Receive Date: 20150824
  Receipt Date: 20150824
  Transmission Date: 20151125
  Serious: No
  Sender: FDA-Public Use
  Company Number: PHEH2014US024499

PATIENT
  Age: 66 Year
  Sex: Female

DRUGS (3)
  1. AFINITOR [Suspect]
     Active Substance: EVEROLIMUS
     Indication: MALIGNANT URINARY TRACT NEOPLASM
     Dosage: 5 MG, QD
     Route: 048
  2. AFINITOR [Suspect]
     Active Substance: EVEROLIMUS
     Dosage: 10 MG, UNK
     Route: 048
  3. AFINITOR [Suspect]
     Active Substance: EVEROLIMUS
     Dosage: 7 MG, UNK
     Route: 048

REACTIONS (11)
  - Sinusitis [Unknown]
  - Insomnia [Unknown]
  - Muscle spasms [Unknown]
  - Malaise [Unknown]
  - Root canal infection [Unknown]
  - Anaemia [Unknown]
  - Bronchitis [Unknown]
  - Lung infection [Unknown]
  - Limb discomfort [Unknown]
  - Infection [Unknown]
  - Ear infection [Unknown]

NARRATIVE: CASE EVENT DATE: 20141205
